FAERS Safety Report 12871254 (Version 2)
Quarter: 2016Q4

REPORT INFORMATION
  Report Type: Spontaneous
  Country: SE (occurrence: SE)
  Receive Date: 20161020
  Receipt Date: 20161026
  Transmission Date: 20170207
  Serious: Yes (Hospitalization, Other)
  Sender: FDA-Public Use
  Company Number: SE-GILEAD-2016-0238985

PATIENT
  Age: 52 Year
  Sex: Male

DRUGS (1)
  1. GENVOYA [Suspect]
     Active Substance: COBICISTAT\ELVITEGRAVIR\EMTRICITABINE\TENOFOVIR ALAFENAMIDE FUMARATE
     Indication: HIV INFECTION
     Dosage: UNK
     Route: 065
     Dates: start: 20160812, end: 20160923

REACTIONS (7)
  - Ascites [Not Recovered/Not Resolved]
  - Off label use [Recovered/Resolved]
  - Oesophageal candidiasis [Not Recovered/Not Resolved]
  - Renal failure [Recovering/Resolving]
  - Beta haemolytic streptococcal infection [Unknown]
  - Sepsis [Unknown]
  - Haemodialysis [Unknown]

NARRATIVE: CASE EVENT DATE: 201609
